FAERS Safety Report 13522196 (Version 1)
Quarter: 2017Q2

REPORT INFORMATION
  Report Type: Spontaneous
  Country: US (occurrence: US)
  Receive Date: 20170508
  Receipt Date: 20170508
  Transmission Date: 20170830
  Serious: Yes (Death, Other)
  Sender: FDA-Public Use
  Company Number: US-GLAXOSMITHKLINE-US2017066235

PATIENT
  Age: 91 Year
  Sex: Female

DRUGS (1)
  1. ADVAIR DISKUS [Suspect]
     Active Substance: FLUTICASONE PROPIONATE\SALMETEROL XINAFOATE
     Indication: EMPHYSEMA
     Dosage: 1 PUFF(S), BID
     Route: 055
     Dates: start: 201611

REACTIONS (4)
  - Drug dose omission [Unknown]
  - Hip fracture [Fatal]
  - Bone cancer [Fatal]
  - Breast cancer recurrent [Fatal]

NARRATIVE: CASE EVENT DATE: 20161122
